FAERS Safety Report 6623142-9 (Version None)
Quarter: 2010Q1

REPORT INFORMATION
  Report Type: 
  Country: None (occurrence: None)
  Receive Date: 20100310
  Receipt Date: 20091214
  Transmission Date: 20100710
  Serious: No
  Sender: FDA-Public Use
  Company Number: US-BIOGENIDEC-2009BI041016

PATIENT
  Sex: Female

DRUGS (2)
  1. AVONEX [Suspect]
     Indication: MULTIPLE SCLEROSIS
     Route: 030
     Dates: start: 20000915, end: 20080701
  2. AVONEX [Suspect]
     Route: 030
     Dates: start: 20090122, end: 20090908

REACTIONS (1)
  - MEMORY IMPAIRMENT [None]
